FAERS Safety Report 9357058 (Version 1)
Quarter: 2013Q2

REPORT INFORMATION
  Report Type: Spontaneous
  Country: US (occurrence: None)
  Receive Date: 20130617
  Receipt Date: 20130617
  Transmission Date: 20140414
  Serious: Yes (Hospitalization)
  Sender: FDA-Public Use
  Company Number: DKLU1091446

PATIENT
  Age: 22 Year
  Sex: Male

DRUGS (1)
  1. DESOXYN [Suspect]
     Indication: PRODUCT USED FOR UNKNOWN INDICATION
     Route: 048

REACTIONS (20)
  - Chills [None]
  - Pyrexia [None]
  - Abdominal pain [None]
  - Nausea [None]
  - Vomiting [None]
  - Diarrhoea [None]
  - Tachycardia [None]
  - Tachypnoea [None]
  - Oxygen saturation decreased [None]
  - Metabolic acidosis [None]
  - Somnolence [None]
  - Respiratory distress [None]
  - Pleural effusion [None]
  - Aspartate aminotransferase increased [None]
  - Alanine aminotransferase increased [None]
  - Blood creatinine increased [None]
  - International normalised ratio increased [None]
  - Pneumonia [None]
  - Toxicity to various agents [None]
  - Protein bound iodine increased [None]
